FAERS Safety Report 17417319 (Version 1)
Quarter: 2020Q1

REPORT INFORMATION
  Report Type: Report from Study
  Country: ES (occurrence: ES)
  Receive Date: 20200214
  Receipt Date: 20200214
  Transmission Date: 20200409
  Serious: Yes (Hospitalization)
  Sender: FDA-Public Use
  Company Number: ES-RECORDATI RARE DISEASES-2080381

PATIENT
  Age: 3 Year
  Sex: Female
  Weight: 10.5 kg

DRUGS (3)
  1. CARBAGLU [Suspect]
     Active Substance: CARGLUMIC ACID
     Indication: PRODUCT USED FOR UNKNOWN INDICATION
     Dates: start: 2016
  2. CARBAGLU [Suspect]
     Active Substance: CARGLUMIC ACID
     Dates: start: 20191121
  3. CARBAGLU [Suspect]
     Active Substance: CARGLUMIC ACID
     Dates: start: 20191126

REACTIONS (1)
  - Tonic convulsion [Recovered/Resolved]

NARRATIVE: CASE EVENT DATE: 20191101
